FAERS Safety Report 13103900 (Version 1)
Quarter: 2017Q1

REPORT INFORMATION
  Report Type: Spontaneous
  Country: CA (occurrence: CA)
  Receive Date: 20170111
  Receipt Date: 20170111
  Transmission Date: 20170428
  Serious: Yes (Life-Threatening, Hospitalization)
  Sender: FDA-Public Use
  Company Number: CA-ROCHE-1877181

PATIENT
  Age: 37 Year
  Sex: Female

DRUGS (9)
  1. AMLODIPINE BESILATE [Concomitant]
     Active Substance: AMLODIPINE BESYLATE
     Route: 065
  2. CELEBREX [Concomitant]
     Active Substance: CELECOXIB
     Route: 065
  3. METHOTREXATE. [Concomitant]
     Active Substance: METHOTREXATE
  4. VENLAFAXINE HYDROCHLORIDE. [Concomitant]
     Active Substance: VENLAFAXINE HYDROCHLORIDE
  5. HUMIRA [Suspect]
     Active Substance: ADALIMUMAB
     Indication: PRODUCT USED FOR UNKNOWN INDICATION
     Route: 058
  6. ACTEMRA [Suspect]
     Active Substance: TOCILIZUMAB
     Indication: RHEUMATOID ARTHRITIS
     Route: 058
  7. CIMZIA [Suspect]
     Active Substance: CERTOLIZUMAB PEGOL
     Indication: PRODUCT USED FOR UNKNOWN INDICATION
     Route: 058
  8. ENBREL [Suspect]
     Active Substance: ETANERCEPT
     Indication: PRODUCT USED FOR UNKNOWN INDICATION
     Route: 065
  9. ACETAMINOPHEN/CAFFEINE/CODEINE PHOSPHATE/MEPROBAMATE [Concomitant]
     Route: 065

REACTIONS (5)
  - Weight increased [Recovering/Resolving]
  - Depression [Recovering/Resolving]
  - Myocardial infarction [Recovering/Resolving]
  - Pruritus [Recovering/Resolving]
  - Nausea [Recovering/Resolving]
